FAERS Safety Report 5099592-1 (Version None)
Quarter: 2006Q3

REPORT INFORMATION
  Report Type: 
  Country: None (occurrence: None)
  Receive Date: 20060906
  Receipt Date: 20060816
  Transmission Date: 20061208
  Serious: Yes (Other)
  Sender: FDA-Public Use
  Company Number: 2006100202

PATIENT
  Age: 52 Year
  Sex: Female
  Weight: 60.782 kg

DRUGS (6)
  1. NORVASC [Suspect]
     Indication: PROPHYLAXIS
     Dosage: 5 MG (5 MG, 1 IN 1 D), ORAL
     Route: 048
  2. CHANTIX [Suspect]
     Indication: SMOKING CESSATION THERAPY
     Dosage: 1 MG (1 MG, 1 IN 1 D), ORAL
     Route: 048
     Dates: start: 20060814, end: 20060816
  3. DICLOFENAC SODIUM [Suspect]
     Indication: LIMB INJURY
     Dates: start: 20060101, end: 20060801
  4. ASCORBIC ACID [Concomitant]
  5. CALCIUM GLUCONATE [Concomitant]
  6. LEXAPRO [Concomitant]

REACTIONS (6)
  - ARTHRALGIA [None]
  - BLOOD PRESSURE INCREASED [None]
  - DIARRHOEA [None]
  - LIMB INJURY [None]
  - OEDEMA PERIPHERAL [None]
  - TREATMENT NONCOMPLIANCE [None]
